FAERS Safety Report 11088993 (Version 1)
Quarter: 2015Q2

REPORT INFORMATION
  Report Type: Spontaneous
  Country: TR (occurrence: TR)
  Receive Date: 20150504
  Receipt Date: 20150504
  Transmission Date: 20150821
  Serious: Yes (Other)
  Sender: FDA-Public Use
  Company Number: TR-AMGEN-TURSP2015041926

PATIENT
  Age: 41 Year
  Sex: Female

DRUGS (1)
  1. ENBREL [Suspect]
     Active Substance: ETANERCEPT
     Indication: ANKYLOSING SPONDYLITIS
     Dosage: 50 MG, WEEKLY
     Route: 058
     Dates: start: 20150209, end: 20150420

REACTIONS (4)
  - Lymphadenopathy [Not Recovered/Not Resolved]
  - Breast calcifications [Not Recovered/Not Resolved]
  - Calcification metastatic [Not Recovered/Not Resolved]
  - Ultrasound breast abnormal [Not Recovered/Not Resolved]

NARRATIVE: CASE EVENT DATE: 20150424
